FAERS Safety Report 15350020 (Version 2)
Quarter: 2018Q4

REPORT INFORMATION
  Report Type: Spontaneous
  Country: US (occurrence: US)
  Receive Date: 20180904
  Receipt Date: 20181006
  Transmission Date: 20190204
  Serious: No
  Sender: FDA-Public Use
  Company Number: US-LEO PHARMA-310785

PATIENT
  Age: 64 Year
  Sex: Female

DRUGS (3)
  1. PICATO [Suspect]
     Active Substance: INGENOL MEBUTATE
     Dosage: USED TWO TIMES IN THE PAST
     Dates: start: 2014
  2. PICATO [Suspect]
     Active Substance: INGENOL MEBUTATE
     Dosage: USED TWO TIMES IN THE PAST
  3. PICATO [Suspect]
     Active Substance: INGENOL MEBUTATE
     Indication: ACTINIC KERATOSIS
     Route: 061
     Dates: start: 20180826, end: 20180827

REACTIONS (10)
  - Application site erythema [Recovered/Resolved]
  - Pyrexia [Recovered/Resolved]
  - Influenza like illness [Recovered/Resolved]
  - Application site vesicles [Recovered/Resolved]
  - Inappropriate schedule of product administration [Unknown]
  - Headache [Recovered/Resolved]
  - Product administration error [Unknown]
  - Pain [Recovered/Resolved]
  - Application site pain [Recovered/Resolved]
  - Incorrect product administration duration [Unknown]

NARRATIVE: CASE EVENT DATE: 20180826
